FAERS Safety Report 8029327-1 (Version None)
Quarter: 2012Q1

REPORT INFORMATION
  Report Type: 
  Country: None (occurrence: None)
  Receive Date: 20120106
  Receipt Date: 20120105
  Transmission Date: 20120608
  Serious: Yes (Hospitalization)
  Sender: FDA-Public Use
  Company Number: AU-AMGEN-AUSCT2012000438

PATIENT
  Age: 82 Year
  Sex: Male

DRUGS (1)
  1. ROMIPLOSTIM [Suspect]
     Indication: THROMBOCYTOPENIC PURPURA
     Dosage: 738 MUG, QWK
     Route: 058
     Dates: start: 20100902

REACTIONS (1)
  - HYPERTENSION [None]
